FAERS Safety Report 6042672-4 (Version None)
Quarter: 2009Q1

REPORT INFORMATION
  Report Type: 
  Country: None (occurrence: None)
  Receive Date: 20090119
  Receipt Date: 20090107
  Transmission Date: 20090719
  Serious: Yes (Disabling)
  Sender: FDA-Public Use
  Company Number: PHEH2004US02126

PATIENT
  Sex: Female

DRUGS (12)
  1. AREDIA [Suspect]
     Indication: MULTIPLE MYELOMA
     Dosage: 90 MG, QMO
     Route: 042
     Dates: start: 19970601, end: 20041001
  2. TOPROL-XL [Concomitant]
     Dosage: 100 MG, QD
  3. CATAPRES [Concomitant]
  4. COZAAR [Concomitant]
  5. NORVASC [Concomitant]
  6. FUROSEMIDE [Concomitant]
  7. SYNTHROID [Concomitant]
  8. THALIDOMIDE [Concomitant]
     Dosage: 50 MG, QD
     Dates: start: 19990601, end: 20000101
  9. THALIDOMIDE [Concomitant]
     Dosage: 100 MG, QD
     Dates: start: 20000101
  10. PROTONIX [Concomitant]
     Dosage: 40 MG, QD
  11. MELPHALAN [Concomitant]
     Dosage: 4 DAYS/QMOS
     Dates: start: 19980801, end: 19990501
  12. PREDNISONE [Concomitant]
     Dosage: 4 DAYS/QMOS
     Dates: start: 19980801, end: 19990501

REACTIONS (9)
  - BONE DISORDER [None]
  - DEVICE FAILURE [None]
  - JOINT DISLOCATION [None]
  - MANDIBULAR PROSTHESIS USER [None]
  - ORAL SURGERY [None]
  - OSTEONECROSIS [None]
  - PURULENT DISCHARGE [None]
  - SOFT TISSUE DISORDER [None]
  - TOOTH ABSCESS [None]
